FAERS Safety Report 25405474 (Version 1)
Quarter: 2025Q2

REPORT INFORMATION
  Report Type: Report from Study
  Country: US (occurrence: US)
  Receive Date: 20250606
  Receipt Date: 20250606
  Transmission Date: 20250717
  Serious: Yes (Hospitalization)
  Sender: TAIHO ONCOLOGY INC
  Company Number: US-TAIHOP-2025-005771

PATIENT
  Sex: Female

DRUGS (1)
  1. INQOVI [Suspect]
     Active Substance: CEDAZURIDINE\DECITABINE
     Indication: Myelodysplastic syndrome
     Dosage: DECITABINE 35 MG + CEDAZURIDINE 100 MG ON DAYS 1 TO 5; CYCLE UNKNOWN
     Route: 048
     Dates: start: 202403

REACTIONS (4)
  - Cardiac arrest [Recovered/Resolved]
  - Gastrointestinal infection [Recovering/Resolving]
  - Influenza [Recovering/Resolving]
  - Migraine [Recovering/Resolving]
